FAERS Safety Report 6980928-9 (Version None)
Quarter: 2010Q3

REPORT INFORMATION
  Report Type: 
  Country: None (occurrence: None)
  Receive Date: 20100827
  Receipt Date: 20100525
  Transmission Date: 20110219
  Serious: Yes (Other)
  Sender: FDA-Public Use
  Company Number: US-WYE-H15432410

PATIENT
  Age: 6 Year
  Sex: Female
  Weight: 23.61 kg

DRUGS (1)
  1. CHILDREN'S ADVIL [Suspect]
     Indication: HEADACHE
     Dosage: 1 DOSE X 1, ORAL
     Route: 048
     Dates: start: 20100524, end: 20100524

REACTIONS (1)
  - THROAT IRRITATION [None]
